FAERS Safety Report 6554702-1 (Version None)
Quarter: 2010Q1

REPORT INFORMATION
  Report Type: 
  Country: None (occurrence: None)
  Receive Date: 20100122
  Receipt Date: 20100107
  Transmission Date: 20100710
  Serious: Yes (Disabling, Other)
  Sender: FDA-Public Use
  Company Number: ADE2008-0257

PATIENT
  Age: 67 Year
  Sex: Male
  Weight: 63.5 kg

DRUGS (4)
  1. SIMVASTATIN [Suspect]
     Indication: HYPERCHOLESTEROLAEMIA
     Dosage: 40MG - ORAL
     Route: 048
     Dates: start: 20070514
  2. VOLTAREN [Suspect]
     Indication: BACK PAIN
     Dosage: 50MG - ORAL
     Route: 048
     Dates: start: 20080708, end: 20080709
  3. ASPIRIN [Concomitant]
  4. PHOLCODINE [Concomitant]

REACTIONS (4)
  - CIRCULATORY COLLAPSE [None]
  - FALL [None]
  - HEAD INJURY [None]
  - LOSS OF CONSCIOUSNESS [None]
